FAERS Safety Report 18093170 (Version 3)
Quarter: 2020Q3

REPORT INFORMATION
  Report Type: Other
  Country: US (occurrence: US)
  Receive Date: 20200730
  Receipt Date: 20200828
  Transmission Date: 20201103
  Serious: Yes (Other)
  Sender: FDA-Public Use
  Company Number: US-ROCHE-2650848

PATIENT
  Sex: Female

DRUGS (1)
  1. VALCYTE [Suspect]
     Active Substance: VALGANCICLOVIR HYDROCHLORIDE
     Indication: RENAL TRANSPLANT
     Route: 065

REACTIONS (4)
  - Immunosuppression [Unknown]
  - Viral infection [Unknown]
  - Condition aggravated [Unknown]
  - Cytomegalovirus infection [Recovered/Resolved]
